FAERS Safety Report 4621356-0 (Version None)
Quarter: 2005Q1

REPORT INFORMATION
  Report Type: 
  Country: None (occurrence: None)
  Receive Date: 20050323
  Receipt Date: 20050323
  Transmission Date: 20050727
  Serious: Yes (Hospitalization)
  Sender: FDA-Public Use
  Company Number: None

PATIENT
  Sex: Male
  Weight: 58.8315 kg

DRUGS (1)
  1. BUPROPION   75MG [Suspect]
     Indication: SMOKING CESSATION THERAPY
     Dosage: 75MG    2 TABS BID    ORAL
     Route: 048
     Dates: start: 20041205, end: 20041210

REACTIONS (5)
  - CONFUSIONAL STATE [None]
  - FALL [None]
  - GAIT DISTURBANCE [None]
  - HEAD INJURY [None]
  - SUBDURAL HAEMORRHAGE [None]
